FAERS Safety Report 7622377-6 (Version None)
Quarter: 2011Q3

REPORT INFORMATION
  Report Type: 
  Country: None (occurrence: None)
  Receive Date: 20110701
  Receipt Date: 20101013
  Transmission Date: 20111222
  Serious: Yes (Other)
  Sender: FDA-Public Use
  Company Number: 7022073

PATIENT
  Age: 55 Year
  Sex: Female

DRUGS (5)
  1. REBIF [Suspect]
     Indication: MULTIPLE SCLEROSIS
     Dosage: 44 MCG, 3 IN 1 WK, SUBCUTANEOUS
     Route: 058
     Dates: start: 20080417
  2. LAMICTAL [Concomitant]
  3. LORTAB (VICODIN) [Concomitant]
  4. DIAZEPAM [Concomitant]
  5. PAIN PATCH (ALL OTHER THERAPEUTIC PRODUCTS) [Concomitant]

REACTIONS (5)
  - OEDEMA PERIPHERAL [None]
  - MUSCULAR WEAKNESS [None]
  - CONDITION AGGRAVATED [None]
  - CONVULSION [None]
  - INJECTION SITE ERYTHEMA [None]
